FAERS Safety Report 6693973-8 (Version None)
Quarter: 2010Q2

REPORT INFORMATION
  Report Type: 
  Country: None (occurrence: None)
  Receive Date: 20100423
  Receipt Date: 20100412
  Transmission Date: 20101027
  Serious: Yes (Other)
  Sender: FDA-Public Use
  Company Number: GR-PFIZER INC-2010045476

PATIENT
  Age: 40 Year
  Sex: Female

DRUGS (2)
  1. GEODON [Suspect]
     Indication: SCHIZOPHRENIA
     Dosage: 80 MG, 1X/DAY
     Route: 048
     Dates: start: 20100301, end: 20100301
  2. GEODON [Suspect]
     Dosage: 80 MG, 2X/DAY
     Route: 048
     Dates: start: 20100301, end: 20100301

REACTIONS (3)
  - HEART RATE INCREASED [None]
  - PALPITATIONS [None]
  - PANIC ATTACK [None]
